FAERS Safety Report 8406741-3 (Version None)
Quarter: 2012Q2

REPORT INFORMATION
  Report Type: 
  Country: None (occurrence: None)
  Receive Date: 20120604
  Receipt Date: 20120523
  Transmission Date: 20120825
  Serious: Yes (Hospitalization)
  Sender: FDA-Public Use
  Company Number: FR-ELI_LILLY_AND_COMPANY-FR201205007921

PATIENT
  Sex: Female

DRUGS (6)
  1. CISPLATIN [Concomitant]
  2. ALIMTA [Suspect]
     Indication: ADENOCARCINOMA
     Dosage: 1200 MG, UNK
     Route: 042
  3. AVASTIN [Concomitant]
     Indication: ADENOCARCINOMA
     Dosage: 980 MG, UNK
  4. FENOFIBRATE [Concomitant]
  5. FOLIC ACID [Concomitant]
  6. ALLOPURINOL [Concomitant]

REACTIONS (1)
  - PALMAR-PLANTAR ERYTHRODYSAESTHESIA SYNDROME [None]
